FAERS Safety Report 7666193-8 (Version None)
Quarter: 2011Q3

REPORT INFORMATION
  Report Type: 
  Country: None (occurrence: None)
  Receive Date: 20110806
  Receipt Date: 20110627
  Transmission Date: 20111222
  Serious: No
  Sender: FDA-Public Use
  Company Number: US-ABBOTT-11P-163-0834464-00

PATIENT
  Sex: Female

DRUGS (3)
  1. TWO UNKNOWN EYE DROPS [Concomitant]
     Indication: PRODUCT USED FOR UNKNOWN INDICATION
  2. MOBIC [Concomitant]
     Indication: PRODUCT USED FOR UNKNOWN INDICATION
  3. NIASPAN [Suspect]
     Indication: HIGH DENSITY LIPOPROTEIN INCREASED
     Dosage: ONCE EARLY IN THE DAY, ONCE AT BEDTIME
     Dates: start: 20090101

REACTIONS (6)
  - FLUSHING [None]
  - HEART RATE INCREASED [None]
  - PRURITUS [None]
  - BODY TEMPERATURE INCREASED [None]
  - EAR DISCOMFORT [None]
  - TINNITUS [None]
